FAERS Safety Report 8811269 (Version 2)
Quarter: 2012Q4

REPORT INFORMATION
  Report Type: Spontaneous
  Country: US (occurrence: None)
  Receive Date: 20120924
  Receipt Date: 20121106
  Transmission Date: 20130627
  Serious: Yes (Other)
  Sender: FDA-Public Use
  Company Number: DSA_59693_2012

PATIENT
  Sex: Female

DRUGS (9)
  1. XENAZINE [Suspect]
     Indication: HUNTINGTON^S DISEASE
     Dosage: (DF Oral)
     Route: 048
     Dates: start: 20120907, end: 201209
  2. TRAZODONE [Concomitant]
  3. OLANZAPINE [Concomitant]
  4. HYDROCODONE [Concomitant]
  5. ATIVAN [Concomitant]
  6. FLUOXETINE [Concomitant]
  7. ORAP [Concomitant]
  8. TYLENOL /00020001/ [Concomitant]
  9. MILK OF MAGNESIA [Concomitant]

REACTIONS (1)
  - Convulsion [None]
